FAERS Safety Report 25596185 (Version 1)
Quarter: 2025Q3

REPORT INFORMATION
  Report Type: Spontaneous
  Country: US (occurrence: US)
  Receive Date: 20250723
  Receipt Date: 20250723
  Transmission Date: 20251021
  Serious: No
  Sender: SANOFI AVENTIS
  Company Number: US-SA-2025SA209741

PATIENT
  Age: 77 Year
  Sex: Male
  Weight: 100 kg

DRUGS (10)
  1. DUPIXENT [Suspect]
     Active Substance: DUPILUMAB
     Indication: Dermatitis atopic
     Route: 058
  2. ACTOS [Concomitant]
     Active Substance: PIOGLITAZONE HYDROCHLORIDE
     Dates: start: 20250718
  3. ALBUTEROL [Concomitant]
     Active Substance: ALBUTEROL
     Dates: start: 20250718
  4. CETIRIZINE [Concomitant]
     Active Substance: CETIRIZINE HYDROCHLORIDE
     Dates: start: 20250718
  5. CLONIDINE [Concomitant]
     Active Substance: CLONIDINE
     Dates: start: 20250718
  6. DICLOFENAC [Concomitant]
     Active Substance: DICLOFENAC
     Dates: start: 20250718
  7. DOXEPIN [Concomitant]
     Active Substance: DOXEPIN
     Dates: start: 20250718
  8. DULOXETINE [Concomitant]
     Active Substance: DULOXETINE
     Dates: start: 20250718
  9. FLUTICASONE [Concomitant]
     Active Substance: FLUTICASONE
     Dates: start: 20250718
  10. FOSAMAX [Concomitant]
     Active Substance: ALENDRONATE SODIUM
     Dates: start: 20250718

REACTIONS (1)
  - Rebound atopic dermatitis [Unknown]

NARRATIVE: CASE EVENT DATE: 20250618
